FAERS Safety Report 18293941 (Version 2)
Quarter: 2020Q4

REPORT INFORMATION
  Report Type: Report from Study
  Country: US (occurrence: US)
  Receive Date: 20200922
  Receipt Date: 20201120
  Transmission Date: 20210113
  Serious: No
  Sender: FDA-Public Use
  Company Number: NVSC2020US255354

PATIENT
  Sex: Female

DRUGS (4)
  1. MAYZENT [Suspect]
     Active Substance: SIPONIMOD
     Dosage: 2 MG, QD
     Route: 048
  2. DEPAKOTE [Concomitant]
     Active Substance: DIVALPROEX SODIUM
     Indication: MIGRAINE PROPHYLAXIS
     Dosage: UNK
     Route: 065
  3. MAYZENT [Suspect]
     Active Substance: SIPONIMOD
     Indication: PRODUCT USED FOR UNKNOWN INDICATION
     Dosage: 1 DF, QD (TAKE AS DIRECTED ON START PACK. COMPLETE BEFORE STARTING MAINTENANCE DOSE. TAKE 1 TABLET B
     Route: 048
  4. MAYZENT [Suspect]
     Active Substance: SIPONIMOD
     Dosage: 1 DF, QD (TAKE AS DIRECTED ON START PACK. COMPLETE BEFORE STARTING MAINTENANCE DOSE. TAKE 1 TABLET B
     Route: 048

REACTIONS (6)
  - Diarrhoea [Unknown]
  - Flatulence [Unknown]
  - Alopecia [Unknown]
  - Discomfort [Unknown]
  - Headache [Unknown]
  - Migraine [Unknown]
